FAERS Safety Report 6553639-1 (Version None)
Quarter: 2010Q1

REPORT INFORMATION
  Report Type: 
  Country: None (occurrence: None)
  Receive Date: 20100125
  Receipt Date: 20100125
  Transmission Date: 20100710
  Serious: Yes (Hospitalization)
  Sender: FDA-Public Use
  Company Number: None

PATIENT
  Age: 63 Year
  Sex: Female
  Weight: 48.9885 kg

DRUGS (1)
  1. AVELOX [Suspect]
     Dosage: ONE DAILY
     Dates: start: 20091218, end: 20091221

REACTIONS (6)
  - ARTHRALGIA [None]
  - BACK PAIN [None]
  - INFLAMMATION [None]
  - ORAL PAIN [None]
  - PAIN IN EXTREMITY [None]
  - SPINAL COLUMN STENOSIS [None]
